FAERS Safety Report 4349278-3 (Version None)
Quarter: 2004Q1

REPORT INFORMATION
  Report Type: 
  Country: None (occurrence: None)
  Receive Date: 20040329
  Receipt Date: 20031124
  Transmission Date: 20041129
  Serious: No
  Sender: FDA-Public Use
  Company Number: USA031153386

PATIENT
  Age: 16 Year

DRUGS (1)
  1. STRATTERA [Suspect]
     Dates: start: 20030701

REACTIONS (2)
  - ANOREXIA [None]
  - HALLUCINATION, AUDITORY [None]
